FAERS Safety Report 5738734-9 (Version None)
Quarter: 2008Q2

REPORT INFORMATION
  Report Type: 
  Country: None (occurrence: None)
  Receive Date: 20080515
  Receipt Date: 20080509
  Transmission Date: 20081010
  Serious: Yes (Other)
  Sender: FDA-Public Use
  Company Number: BR-ASTRAZENECA-2008UW09743

PATIENT
  Age: 67 Year
  Sex: Male
  Weight: 68 kg

DRUGS (6)
  1. ATACAND HCT [Suspect]
     Indication: HYPERTENSION
     Route: 048
     Dates: start: 20080201
  2. SELOZOK [Suspect]
     Indication: HYPERTENSION
     Route: 048
     Dates: start: 20070101, end: 20070101
  3. SELOZOK [Suspect]
     Route: 048
     Dates: start: 20070101
  4. PRESSAT [Concomitant]
     Indication: HYPERTENSION
     Route: 048
  5. DIAFERINA [Concomitant]
     Indication: FIBROMYALGIA
     Route: 048
  6. MSM [Concomitant]
     Indication: FIBROMYALGIA
     Route: 048

REACTIONS (6)
  - BLOOD GLUCOSE INCREASED [None]
  - FALL [None]
  - ILL-DEFINED DISORDER [None]
  - PRURITUS [None]
  - RHINITIS [None]
  - TENDON RUPTURE [None]
